FAERS Safety Report 19265391 (Version 1)
Quarter: 2021Q2

REPORT INFORMATION
  Report Type: Spontaneous
  Country: US (occurrence: US)
  Receive Date: 20210517
  Receipt Date: 20210517
  Transmission Date: 20210717
  Serious: Yes (Other)
  Sender: FDA-Public Use
  Company Number: US-SA-2021SA160419

PATIENT
  Age: 5 Year
  Sex: Male

DRUGS (6)
  1. 6?MERCAPTOPURINE MONOHYDRATE [Interacting]
     Active Substance: MERCAPTOPURINE
     Indication: CHRONIC LYMPHOCYTIC LEUKAEMIA
     Route: 048
  2. VINCRISTINE [Concomitant]
     Active Substance: VINCRISTINE
     Indication: CHRONIC LYMPHOCYTIC LEUKAEMIA
  3. LEFLUNOMIDE. [Suspect]
     Active Substance: LEFLUNOMIDE
     Indication: POLYOMAVIRUS VIRAEMIA
     Dosage: 50 MG
     Route: 048
  4. LEFLUNOMIDE. [Interacting]
     Active Substance: LEFLUNOMIDE
     Dosage: 20 MG, QD
     Route: 048
  5. LEFLUNOMIDE. [Interacting]
     Active Substance: LEFLUNOMIDE
     Dosage: 10 UNK
     Route: 048
  6. IMMUNOGLOBULINS NOS [Concomitant]
     Active Substance: IMMUNE GLOBULIN NOS
     Dosage: EVERY 2 WEEKS
     Route: 042

REACTIONS (6)
  - Drug interaction [Unknown]
  - Pancytopenia [Unknown]
  - Myelosuppression [Unknown]
  - Off label use [Unknown]
  - Transaminases increased [Unknown]
  - Drug effective for unapproved indication [Unknown]
